FAERS Safety Report 5922321-3 (Version None)
Quarter: 2008Q4

REPORT INFORMATION
  Report Type: 
  Country: None (occurrence: None)
  Receive Date: 20081017
  Receipt Date: 20081010
  Transmission Date: 20090506
  Serious: Yes (Hospitalization, Other)
  Sender: FDA-Public Use
  Company Number: US-ELI_LILLY_AND_COMPANY-US200810002840

PATIENT
  Sex: Male

DRUGS (2)
  1. HUMULIN N [Suspect]
  2. HUMALOG [Suspect]

REACTIONS (13)
  - BLOOD GLUCOSE INCREASED [None]
  - BRONCHIAL DISORDER [None]
  - CARDIAC DISORDER [None]
  - COUGH [None]
  - HEART RATE DECREASED [None]
  - HYPERSENSITIVITY [None]
  - LUNG DISORDER [None]
  - PAIN IN EXTREMITY [None]
  - RHINORRHOEA [None]
  - SINUS DISORDER [None]
  - SLEEP APNOEA SYNDROME [None]
  - TOOTH INFECTION [None]
  - VISION BLURRED [None]
